FAERS Safety Report 17794585 (Version 1)
Quarter: 2020Q2

REPORT INFORMATION
  Report Type: Spontaneous
  Country: DE (occurrence: DE)
  Receive Date: 20200515
  Receipt Date: 20200515
  Transmission Date: 20200714
  Serious: Yes (Other)
  Sender: FDA-Public Use
  Company Number: DE-NOVOPROD-727792

PATIENT
  Age: 11 Year
  Sex: Female

DRUGS (3)
  1. NOVORAPID [Suspect]
     Active Substance: INSULIN ASPART
     Dosage: 11,57 IU (CARTRIDGE CHANGE)
     Route: 058
  2. NOVORAPID [Suspect]
     Active Substance: INSULIN ASPART
     Indication: TYPE 1 DIABETES MELLITUS
     Dosage: 11,57 IU
     Route: 058
  3. NOVORAPID [Suspect]
     Active Substance: INSULIN ASPART
     Dosage: ( BASAL RATE SET TO 200%)
     Route: 058

REACTIONS (2)
  - Diabetic ketoacidosis [Unknown]
  - Product leakage [Unknown]

NARRATIVE: CASE EVENT DATE: 20200507
